FAERS Safety Report 8117935-9 (Version None)
Quarter: 2012Q1

REPORT INFORMATION
  Report Type: 
  Country: None (occurrence: None)
  Receive Date: 20120207
  Receipt Date: 20120203
  Transmission Date: 20120608
  Serious: No
  Sender: FDA-Public Use
  Company Number: US-BAYER-2012-011584

PATIENT
  Age: 63 Year
  Sex: Female
  Weight: 58.957 kg

DRUGS (2)
  1. CHEMOTHERAPEUTICS NOS [Concomitant]
     Indication: COLON CANCER
  2. ULTRAVIST 150 [Suspect]
     Indication: COMPUTERISED TOMOGRAM
     Dosage: 80 ML, ONCE
     Route: 042
     Dates: start: 20120203, end: 20120203

REACTIONS (2)
  - URTICARIA [None]
  - PRURITUS [None]
